FAERS Safety Report 24379211 (Version 1)
Quarter: 2024Q3

REPORT INFORMATION
  Report Type: Spontaneous
  Country: CN (occurrence: CN)
  Receive Date: 20240930
  Receipt Date: 20240930
  Transmission Date: 20241017
  Serious: Yes (Life-Threatening, Hospitalization, Other)
  Sender: FRESENIUS KABI
  Company Number: CN-FreseniusKabi-FK202414417

PATIENT
  Age: 75 Year
  Sex: Male
  Weight: 76.5 kg

DRUGS (6)
  1. PROPOFOL [Suspect]
     Active Substance: PROPOFOL
     Indication: Induction of anaesthesia
     Dosage: FORM OF ADMIN.: INJECTION
     Route: 042
     Dates: start: 20240913, end: 20240913
  2. SUFENTANIL CITRATE [Suspect]
     Active Substance: SUFENTANIL CITRATE
     Indication: Induction of anaesthesia
     Dosage: FORM OF ADMIN.: INJECTION
     Route: 042
     Dates: start: 20240913, end: 20240913
  3. REMIMAZOLAM BESYLATE [Suspect]
     Active Substance: REMIMAZOLAM BESYLATE
     Indication: Induction of anaesthesia
     Dosage: FORM OF ADMIN.: POWDER FOR INJECTION
     Route: 042
     Dates: start: 20240913, end: 20240913
  4. ROCURONIUM BROMIDE [Suspect]
     Active Substance: ROCURONIUM BROMIDE
     Indication: Induction of anaesthesia
     Dosage: FORM OF ADMIN.: INJECTION
     Route: 042
     Dates: start: 20240913, end: 20240913
  5. SODIUM CHLORIDE [Concomitant]
     Active Substance: SODIUM CHLORIDE
     Indication: Vehicle solution use
     Dosage: FORM OF ADMIN.: INJECTION
     Route: 042
     Dates: start: 20240913, end: 20240913
  6. SODIUM CHLORIDE [Concomitant]
     Active Substance: SODIUM CHLORIDE
     Dosage: FORM OF ADMIN.: INJECTION
     Dates: start: 20240913, end: 20240913

REACTIONS (2)
  - Anaphylactic shock [Recovered/Resolved]
  - Hypoxic-ischaemic encephalopathy [Unknown]

NARRATIVE: CASE EVENT DATE: 20240913
